FAERS Safety Report 6594704-2 (Version None)
Quarter: 2010Q1

REPORT INFORMATION
  Report Type: 
  Country: None (occurrence: None)
  Receive Date: 20100222
  Receipt Date: 20100208
  Transmission Date: 20100710
  Serious: Yes (Other)
  Sender: FDA-Public Use
  Company Number: CA-MYLANLABS-2010S1001912

PATIENT
  Age: 44 Year

DRUGS (1)
  1. FLUCONAZOLE [Suspect]
     Indication: MENINGITIS CRYPTOCOCCAL

REACTIONS (3)
  - MALAISE [None]
  - MENINGITIS CRYPTOCOCCAL [None]
  - TREATMENT FAILURE [None]
